FAERS Safety Report 5516334-3 (Version None)
Quarter: 2007Q4

REPORT INFORMATION
  Report Type: 
  Country: None (occurrence: None)
  Receive Date: 20071114
  Receipt Date: 20070131
  Transmission Date: 20080405
  Serious: No
  Sender: FDA-Public Use
  Company Number: A0637561A

PATIENT

DRUGS (1)
  1. COMMIT [Suspect]

REACTIONS (8)
  - DENTAL CARIES [None]
  - GINGIVAL BLEEDING [None]
  - GINGIVAL DISCOLOURATION [None]
  - GINGIVAL RECESSION [None]
  - GINGIVITIS [None]
  - INTENTIONAL DRUG MISUSE [None]
  - PHARMACEUTICAL PRODUCT COMPLAINT [None]
  - SENSITIVITY OF TEETH [None]
